FAERS Safety Report 9643359 (Version 1)
Quarter: 2013Q4

REPORT INFORMATION
  Report Type: Spontaneous
  Country: US (occurrence: US)
  Receive Date: 20131024
  Receipt Date: 20131024
  Transmission Date: 20140711
  Serious: Yes (Other)
  Sender: FDA-Public Use
  Company Number: US-009507513-1310USA010791

PATIENT
  Age: 56 Year
  Sex: Male

DRUGS (3)
  1. JANUMET [Suspect]
     Indication: TYPE 2 DIABETES MELLITUS
     Dosage: 50/500 MG, BID
     Route: 048
     Dates: start: 201110, end: 20131018
  2. AMARYL [Concomitant]
  3. PRANDIN [Concomitant]

REACTIONS (1)
  - Pancreatitis [Unknown]
